FAERS Safety Report 7741778-9 (Version None)
Quarter: 2011Q3

REPORT INFORMATION
  Report Type: 
  Country: None (occurrence: None)
  Receive Date: 20110912
  Receipt Date: 20110831
  Transmission Date: 20111222
  Serious: Yes (Hospitalization)
  Sender: FDA-Public Use
  Company Number: US-BIOGENIDEC-2011BI031844

PATIENT
  Age: 41 Year
  Sex: Female

DRUGS (11)
  1. AVONEX [Concomitant]
     Indication: MULTIPLE SCLEROSIS
     Route: 030
     Dates: start: 20090622
  2. TYSABRI [Suspect]
     Indication: MULTIPLE SCLEROSIS
     Route: 042
     Dates: start: 20100916, end: 20110310
  3. DILAUDID [Concomitant]
  4. OMEPRAZOLE [Concomitant]
  5. CITALOPRAM [Concomitant]
  6. STADOL [Concomitant]
     Indication: MIGRAINE
     Route: 045
  7. TYSABRI [Suspect]
     Route: 042
     Dates: start: 20100316, end: 20100706
  8. TOPAMAX [Concomitant]
  9. XANAX [Concomitant]
  10. NEURONTIN [Concomitant]
  11. ZANAFLEX [Concomitant]

REACTIONS (1)
  - PNEUMONIA STREPTOCOCCAL [None]
